FAERS Safety Report 8535551-1 (Version None)
Quarter: 2012Q3

REPORT INFORMATION
  Report Type: 
  Country: None (occurrence: None)
  Receive Date: 20120717
  Receipt Date: 20120717
  Transmission Date: 20120928
  Serious: Yes (Hospitalization)
  Sender: FDA-Public Use
  Company Number: None

PATIENT
  Sex: Female
  Weight: 56.3 kg

DRUGS (8)
  1. SINGULAIR [Concomitant]
  2. ASPIRIN [Concomitant]
  3. XALITAN [Concomitant]
  4. ELOXATIN [Suspect]
     Dosage: 130 MG
     Dates: end: 20120611
  5. LEUCOVORIN CALCIUM [Suspect]
     Dosage: 625 MG
     Dates: end: 20120611
  6. CRESTOR [Concomitant]
  7. SYNTHROID [Concomitant]
  8. FLUOROURACIL [Suspect]
     Dosage: 4327 MG
     Dates: end: 20120613

REACTIONS (5)
  - NAUSEA [None]
  - CHEST DISCOMFORT [None]
  - VOMITING [None]
  - FLUSHING [None]
  - ECG SIGNS OF MYOCARDIAL ISCHAEMIA [None]
